FAERS Safety Report 9292090 (Version 1)
Quarter: 2012Q4

REPORT INFORMATION
  Report Type: Spontaneous
  Country: US (occurrence: None)
  Receive Date: 20121005
  Receipt Date: 20121005
  Transmission Date: 20130627
  Serious: Yes (Hospitalization, Other)
  Sender: FDA-Public Use
  Company Number: AG-2012-1086

PATIENT
  Age: 1 Month
  Sex: Female
  Weight: 3.18 kg

DRUGS (2)
  1. CHLORAMBUCIL [Suspect]
     Indication: MEDICATION ERROR
     Route: 048
     Dates: start: 20090415, end: 20090505
  2. CLINDAMYCIN (CLINDAMYCIN) [Concomitant]

REACTIONS (4)
  - Wrong drug administered [None]
  - Pancytopenia [None]
  - Bone marrow disorder [None]
  - Hydrocephalus [None]
